FAERS Safety Report 6377922-8 (Version None)
Quarter: 2009Q3

REPORT INFORMATION
  Report Type: 
  Country: None (occurrence: None)
  Receive Date: 20090925
  Receipt Date: 20090916
  Transmission Date: 20100115
  Serious: Yes (Hospitalization)
  Sender: FDA-Public Use
  Company Number: PHHY2009IT40363

PATIENT
  Sex: Male

DRUGS (6)
  1. VOLTADVANCE [Suspect]
     Indication: NECK PAIN
     Dosage: 25 MG, PRN
     Route: 048
     Dates: start: 19990901, end: 20090903
  2. VOLTADVANCE [Suspect]
     Indication: PAIN IN EXTREMITY
  3. ASPIRIN [Suspect]
     Dosage: 100 MG PER DAY
     Route: 048
     Dates: start: 19990101
  4. RANITIDINE [Concomitant]
     Dosage: 150 MG, UNK
  5. OSIPINE [Concomitant]
  6. ACEPLUS [Concomitant]

REACTIONS (4)
  - DIZZINESS [None]
  - HYPERHIDROSIS [None]
  - MALAISE [None]
  - MELAENA [None]
